FAERS Safety Report 13075294 (Version 1)
Quarter: 2016Q4

REPORT INFORMATION
  Report Type: Spontaneous
  Country: US (occurrence: US)
  Receive Date: 20161229
  Receipt Date: 20161229
  Transmission Date: 20170207
  Serious: Yes (Disabling, Other)
  Sender: FDA-Public Use
  Company Number: None

PATIENT
  Age: 61 Year
  Sex: Female
  Weight: 76.73 kg

DRUGS (22)
  1. LOMOTIL [Concomitant]
     Active Substance: ATROPINE SULFATE\DIPHENOXYLATE HYDROCHLORIDE
  2. ICE PACKS [Concomitant]
  3. MELOXICAM. [Concomitant]
     Active Substance: MELOXICAM
  4. BUTRANS [Suspect]
     Active Substance: BUPRENORPHINE
     Indication: PAIN
     Dosage: CHANGE PATCH Q 7 DAYS ON SKIN
     Route: 061
     Dates: start: 20161006, end: 20161202
  5. ADVAIR HFA [Concomitant]
     Active Substance: FLUTICASONE PROPIONATE\SALMETEROL XINAFOATE
  6. ALOE VERA GEL [Concomitant]
     Active Substance: ALOE VERA LEAF
  7. TYLENOL EXTRA STRENGTH [Concomitant]
     Active Substance: ACETAMINOPHEN
  8. LIDOCAINE. [Concomitant]
     Active Substance: LIDOCAINE
  9. PRILOCAINE [Concomitant]
     Active Substance: PRILOCAINE
  10. NORCO [Concomitant]
     Active Substance: ACETAMINOPHEN\HYDROCODONE BITARTRATE
  11. COREG [Concomitant]
     Active Substance: CARVEDILOL
  12. LIPITOR [Concomitant]
     Active Substance: ATORVASTATIN CALCIUM
  13. VITAMIN D [Concomitant]
     Active Substance: CHOLECALCIFEROL
  14. ALBUTEROL. [Concomitant]
     Active Substance: ALBUTEROL
  15. PREMARIN [Concomitant]
     Active Substance: ESTROGENS, CONJUGATED
  16. NEXIUM [Concomitant]
     Active Substance: ESOMEPRAZOLE MAGNESIUM
  17. PROMETHSINE [Concomitant]
  18. PROAIR HE [Concomitant]
  19. DAILY VITAMINS [Concomitant]
  20. ROBAXIN [Concomitant]
     Active Substance: METHOCARBAMOL
  21. HYDROXYZINE PAMOATE. [Concomitant]
     Active Substance: HYDROXYZINE PAMOATE
  22. LAMOTRIGINE. [Concomitant]
     Active Substance: LAMOTRIGINE

REACTIONS (7)
  - Application site pain [None]
  - Diarrhoea [None]
  - Migraine [None]
  - Application site pruritus [None]
  - Application site rash [None]
  - Device issue [None]
  - Drug effect incomplete [None]

NARRATIVE: CASE EVENT DATE: 20161006
